FAERS Safety Report 8459719-8 (Version None)
Quarter: 2012Q2

REPORT INFORMATION
  Report Type: 
  Country: None (occurrence: None)
  Receive Date: 20120622
  Receipt Date: 20120619
  Transmission Date: 20120825
  Serious: Yes (Other)
  Sender: FDA-Public Use
  Company Number: US-TEVA-344204USA

PATIENT
  Age: 44 Year
  Sex: Male

DRUGS (4)
  1. CLINDAMYCIN [Suspect]
     Indication: GINGIVAL INFECTION
     Dosage: 1500 MILLIGRAM;
     Route: 048
     Dates: start: 20120401, end: 20120401
  2. CITALOPRAM HYDROBROMIDE [Suspect]
     Dosage: 10 MILLIGRAM;
     Route: 048
     Dates: start: 20120501, end: 20120601
  3. METHYLPHENIDATE HCL [Concomitant]
     Dosage: 30 MILLIGRAM;
  4. CITALOPRAM HYDROBROMIDE [Suspect]
     Indication: DEPRESSION
     Dosage: 20 MILLIGRAM;
     Route: 048
     Dates: start: 20000101, end: 20120501

REACTIONS (5)
  - MIGRAINE [None]
  - ABDOMINAL PAIN UPPER [None]
  - SEROTONIN SYNDROME [None]
  - DIARRHOEA [None]
  - DEPRESSION [None]
